FAERS Safety Report 9219971 (Version 2)
Quarter: 2013Q2

REPORT INFORMATION
  Report Type: Report from Study
  Country: CA (occurrence: CA)
  Receive Date: 20130409
  Receipt Date: 20130517
  Transmission Date: 20140414
  Serious: Yes (Death, Hospitalization, Other)
  Sender: FDA-Public Use
  Company Number: CA-ROCHE-1209736

PATIENT
  Sex: 0

DRUGS (2)
  1. ALTEPLASE [Suspect]
     Indication: ISCHAEMIC STROKE
     Route: 013
  2. ALTEPLASE [Suspect]
     Route: 042

REACTIONS (3)
  - Death [Fatal]
  - Cerebral haemorrhage [Fatal]
  - Convulsion [Unknown]
